FAERS Safety Report 9182210 (Version 1)
Quarter: 2012Q4

REPORT INFORMATION
  Report Type: 
  Country: US (occurrence: US)
  Receive Date: 20121030
  Receipt Date: 20121030
  Transmission Date: 20130627
  Serious: No
  Sender: FDA-Public Use
  Company Number: US-GLAXOSMITHKLINE-A0949191A

PATIENT
  Age: 49 Year
  Sex: Male

DRUGS (1)
  1. SEREVENT DISKUS [Suspect]
     Indication: PRODUCT USED FOR UNKNOWN INDICATION
     Dosage: 50MCG Unknown
     Route: 025
     Dates: start: 20090509

REACTIONS (2)
  - Bronchitis [Unknown]
  - Malaise [Unknown]
